FAERS Safety Report 8229198-4 (Version None)
Quarter: 2012Q1

REPORT INFORMATION
  Report Type: 
  Country: None (occurrence: None)
  Receive Date: 20120322
  Receipt Date: 20120309
  Transmission Date: 20120608
  Serious: Yes (Other)
  Sender: FDA-Public Use
  Company Number: GB-ROCHE-1050029

PATIENT
  Sex: Female
  Weight: 79 kg

DRUGS (3)
  1. ASPIRIN [Concomitant]
     Dates: start: 20120220
  2. SIMVASTATIN [Concomitant]
     Dates: start: 20120220
  3. RANIBIZUMAB [Suspect]
     Indication: DIABETIC RETINAL OEDEMA
     Dates: start: 20110527

REACTIONS (1)
  - TRANSIENT ISCHAEMIC ATTACK [None]
